FAERS Safety Report 16719281 (Version 2)
Quarter: 2022Q1

REPORT INFORMATION
  Report Type: Spontaneous
  Country: NL (occurrence: NL)
  Receive Date: 20190820
  Receipt Date: 20220228
  Transmission Date: 20220423
  Serious: Yes (Death, Hospitalization, Other)
  Sender: FDA-Public Use
  Company Number: NL-AUROBINDO-AUR-APL-2019-054264

PATIENT
  Age: 17 Year
  Sex: Male
  Weight: 97 kg

DRUGS (2)
  1. LEVETIRACETAM [Suspect]
     Active Substance: LEVETIRACETAM
     Indication: Epilepsy
     Dosage: 750 MILLIGRAM, TWO TIMES A DAY, 2X PER DAG 3 STUKS
     Route: 048
     Dates: start: 20181231, end: 20190314
  2. ETOPOSIDE [Concomitant]
     Active Substance: ETOPOSIDE
     Indication: Product used for unknown indication
     Dosage: UNK
     Route: 065

REACTIONS (9)
  - Sepsis [Fatal]
  - Pyrexia [Fatal]
  - Neutropenia [Fatal]
  - Pericarditis [Fatal]
  - Hepatic failure [Fatal]
  - Haemophagocytic lymphohistiocytosis [Fatal]
  - Myocarditis [Fatal]
  - Renal failure [Fatal]
  - Rash [Not Recovered/Not Resolved]

NARRATIVE: CASE EVENT DATE: 20190314
